FAERS Safety Report 7965209 (Version 4)
Quarter: 2016Q2

REPORT INFORMATION
  Report Type: Report from Study
  Country: FR (occurrence: FR)
  Receive Date: 20110527
  Receipt Date: 20160616
  Transmission Date: 20160815
  Serious: Yes (Hospitalization)
  Sender: FDA-Public Use
  Company Number: FR-ROCHE-GNE319215

PATIENT
  Age: 13 Year
  Sex: Male
  Weight: 82.8 kg

DRUGS (2)
  1. SOMATROPIN [Suspect]
     Active Substance: SOMATROPIN
     Indication: PRODUCT USE ISSUE
  2. SOMATROPIN [Suspect]
     Active Substance: SOMATROPIN
     Indication: FOETAL GROWTH RESTRICTION
     Dosage: 0.038 MG/KG, 7 IN 7 DAYS, 10 MG/2 ML
     Route: 058
     Dates: start: 20080916, end: 20130304

REACTIONS (1)
  - Pulmonary valve stenosis [Recovering/Resolving]

NARRATIVE: CASE EVENT DATE: 20110214
